FAERS Safety Report 24903824 (Version 1)
Quarter: 2025Q1

REPORT INFORMATION
  Report Type: Spontaneous
  Country: US (occurrence: US)
  Receive Date: 20250130
  Receipt Date: 20250130
  Transmission Date: 20250409
  Serious: No
  Sender: SUNOVION
  Company Number: US-SMPA-2025SPA000675AA

PATIENT

DRUGS (1)
  1. GEMTESA [Suspect]
     Active Substance: VIBEGRON
     Dosage: 75 MG, QD
     Route: 048
     Dates: start: 202409

REACTIONS (1)
  - Pollakiuria [Not Recovered/Not Resolved]

NARRATIVE: CASE EVENT DATE: 20241201
